FAERS Safety Report 10903868 (Version 1)
Quarter: 2015Q1

REPORT INFORMATION
  Report Type: Spontaneous
  Country: DK (occurrence: DK)
  Receive Date: 20150311
  Receipt Date: 20150311
  Transmission Date: 20150721
  Serious: Yes (Other)
  Sender: FDA-Public Use
  Company Number: DK-RANBAXY-2014R1-82655

PATIENT
  Age: 62 Year
  Sex: Female

DRUGS (1)
  1. FLUCONAZOLE. [Suspect]
     Active Substance: FLUCONAZOLE
     Indication: PROPHYLAXIS
     Dosage: 200 MG, DAILY
     Route: 065

REACTIONS (2)
  - Gene mutation [Unknown]
  - Drug resistance [Unknown]
